FAERS Safety Report 18206817 (Version 1)
Quarter: 2020Q3

REPORT INFORMATION
  Report Type: Spontaneous
  Country: FR (occurrence: FR)
  Receive Date: 20200828
  Receipt Date: 20200828
  Transmission Date: 20201103
  Serious: Yes (Life-Threatening, Hospitalization)
  Sender: FDA-Public Use
  Company Number: FR-BIOVITRUM-2020FR4492

PATIENT
  Age: 15 Year
  Sex: Male
  Weight: 50 kg

DRUGS (2)
  1. KINERET [Suspect]
     Active Substance: ANAKINRA
     Indication: PLEUROPERICARDITIS
     Dosage: 100MG/JOUR PUIS 100MG MATIN ET SOIR ? PARTIR DU 03/06
     Route: 058
     Dates: start: 20200418, end: 20200611
  2. SOLUPRED [Concomitant]
     Indication: PLEUROPERICARDITIS
     Dosage: CORTICO?DES EN COURS DE DECROISSANCE CF COMMENTAIRE
     Route: 048
     Dates: start: 20200417

REACTIONS (3)
  - Haemophagocytic lymphohistiocytosis [Recovered/Resolved]
  - Drug reaction with eosinophilia and systemic symptoms [Recovered/Resolved]
  - Off label use [Recovered/Resolved]

NARRATIVE: CASE EVENT DATE: 20200418
